FAERS Safety Report 8802108 (Version 1)
Quarter: 2012Q4

REPORT INFORMATION
  Report Type: 
  Country: CA (occurrence: CA)
  Receive Date: 20120921
  Receipt Date: 20120921
  Transmission Date: 20130627
  Serious: Yes (Life-Threatening, Hospitalization, Disabling)
  Sender: FDA-Public Use
  Company Number: PHHY2012CA081931

PATIENT
  Age: 56 Year
  Sex: Female

DRUGS (3)
  1. ACLASTA [Suspect]
     Indication: OSTEOPOROSIS
     Dosage: 5 mg/100ml
     Route: 042
     Dates: start: 20110603
  2. ACLASTA [Suspect]
     Dosage: 5 mg/100ml
     Route: 042
     Dates: start: 20120613
  3. B12 [Concomitant]

REACTIONS (1)
  - Brain stem stroke [Unknown]
